FAERS Safety Report 8846738 (Version 1)
Quarter: 2012Q4

REPORT INFORMATION
  Report Type: 
  Country: US (occurrence: US)
  Receive Date: 20121017
  Receipt Date: 20121017
  Transmission Date: 20130627
  Serious: No
  Sender: FDA-Public Use
  Company Number: US-PFIZER INC-2012258702

PATIENT
  Age: 27 Year
  Sex: Male
  Weight: 77.1 kg

DRUGS (5)
  1. PRISTIQ [Suspect]
     Indication: DEPRESSION
     Dosage: 50 mg, 2x/day
     Route: 048
     Dates: start: 2011
  2. NEXIUM [Concomitant]
     Indication: GASTROOESOPHAGEAL REFLUX DISEASE
     Dosage: UNK
  3. NEXIUM [Concomitant]
     Indication: DYSPEPSIA
  4. TRAMADOL [Concomitant]
     Indication: BACK PAIN
     Dosage: UNK
  5. TRAMADOL [Concomitant]
     Indication: MIGRAINE

REACTIONS (1)
  - Blood cholesterol increased [Unknown]
